FAERS Safety Report 6139562-5 (Version None)
Quarter: 2009Q2

REPORT INFORMATION
  Report Type: 
  Country: None (occurrence: None)
  Receive Date: 20090401
  Receipt Date: 20090327
  Transmission Date: 20091009
  Serious: Yes (Life-Threatening, Hospitalization)
  Sender: FDA-Public Use
  Company Number: US-WYE-H08745509

PATIENT
  Age: 13 Year
  Sex: Male

DRUGS (2)
  1. PRISTIQ [Suspect]
     Indication: MAJOR DEPRESSION
     Dosage: 50 MG, FREQUENCY UNKNOWN
     Route: 048
     Dates: start: 20090301
  2. ABILIFY [Concomitant]
     Indication: MAJOR DEPRESSION
     Dosage: UNKNOWN
     Route: 048

REACTIONS (2)
  - ASPHYXIA [None]
  - SUICIDE ATTEMPT [None]
